FAERS Safety Report 9839168 (Version 1)
Quarter: 2014Q1

REPORT INFORMATION
  Report Type: Spontaneous
  Country: GB (occurrence: None)
  Receive Date: 20140116
  Receipt Date: 20140116
  Transmission Date: 20141002
  Serious: Yes (Hospitalization)
  Sender: FDA-Public Use
  Company Number: GB-DEXPHARM-20131197

PATIENT
  Age: 92 Year
  Sex: Male

DRUGS (5)
  1. OMEPRAZOLE [Suspect]
     Dosage: SEP. DOSAGES / INTERVAL: 1 IN 1 DAYS
     Route: 048
  2. ASPIIRN [Concomitant]
  3. BISOPROLOL [Concomitant]
  4. BUMETANIDE [Concomitant]
  5. HUMULIN [Concomitant]

REACTIONS (2)
  - Hypocalcaemia [None]
  - Hypomagnesaemia [None]
